FAERS Safety Report 7269889-5 (Version None)
Quarter: 2011Q1

REPORT INFORMATION
  Report Type: 
  Country: None (occurrence: None)
  Receive Date: 20110202
  Receipt Date: 20110120
  Transmission Date: 20110831
  Serious: Yes (Hospitalization, Other)
  Sender: FDA-Public Use
  Company Number: US-ELI_LILLY_AND_COMPANY-US200909006828

PATIENT
  Sex: Female

DRUGS (13)
  1. THEOPHYLLINE [Concomitant]
     Dosage: 300 MG, 3/D
     Route: 065
  2. VENTOLIN [Concomitant]
     Dosage: UNK, UNKNOWN
     Route: 065
  3. WELCHOL [Concomitant]
     Dosage: 625 MG, UNKNOWN
     Route: 065
  4. PREDNISONE [Concomitant]
     Dosage: 10 MG, DAILY (1/D)
     Route: 065
  5. FORTEO [Suspect]
     Indication: OSTEOPOROSIS
     Dosage: 20 UG, DAILY (1/D)
     Route: 058
     Dates: start: 20090911
  6. ALBUTEROL [Concomitant]
     Dosage: UNK, 4/D
     Route: 065
  7. PULMICORT [Concomitant]
     Dosage: UNK, UNKNOWN
     Route: 065
  8. FISH OIL [Concomitant]
     Dosage: UNK, UNKNOWN
     Route: 065
  9. NEXIUM [Concomitant]
     Dosage: 40 MG, UNKNOWN
     Route: 065
  10. LASIX [Concomitant]
     Dosage: 20 MG, 2/D
     Route: 065
  11. POTASSIUM [Concomitant]
     Dosage: 20 MEQ, 2/D
     Route: 065
  12. ASPIRIN [Concomitant]
     Dosage: 325 UNK, DAILY (1/D)
     Route: 065
  13. INSULIN [Concomitant]
     Dosage: 20 U, DAILY (1/D)
     Route: 065

REACTIONS (8)
  - ARTHROPATHY [None]
  - FOOT DEFORMITY [None]
  - SKIN DISCOLOURATION [None]
  - WEIGHT BEARING DIFFICULTY [None]
  - HIATUS HERNIA [None]
  - FOOT FRACTURE [None]
  - BLOOD GLUCOSE FLUCTUATION [None]
  - FALL [None]
